FAERS Safety Report 4310836-3 (Version None)
Quarter: 2004Q1

REPORT INFORMATION
  Report Type: 
  Country: None (occurrence: None)
  Receive Date: 20040302
  Receipt Date: 20040217
  Transmission Date: 20041129
  Serious: Yes (Other)
  Sender: FDA-Public Use
  Company Number: US-JNJFOC-20031203706

PATIENT
  Age: 58 Year
  Sex: Female

DRUGS (20)
  1. REMICADE [Suspect]
     Indication: RHEUMATOID ARTHRITIS
     Dosage: 5 MG/KG, 1 IN 6 WEEK, INTRAVENOUS
     Route: 042
  2. MTX (METHOTREXATE SODIUM) TABLETS [Concomitant]
  3. STEROIDS (CORTICOSTEROID NOS) [Concomitant]
  4. BENADRYL [Concomitant]
  5. SOLUCORTEF (HYDROCORTISONE SODIUM SUCCINATE) INJECTION [Concomitant]
  6. BEXTRA [Concomitant]
  7. LASIX [Concomitant]
  8. ADVAIR (SERETIDE MITE) [Concomitant]
  9. METAGLIP (GLIPIZIDE) [Concomitant]
  10. COREG [Concomitant]
  11. CALCIUM AND VITAMIN D (CALCIUM D SAUTER) [Concomitant]
  12. ACCUPRIL [Concomitant]
  13. PREDNISONE [Concomitant]
  14. TYLENOL [Concomitant]
  15. FOLIC ACID [Concomitant]
  16. ZYRTEC [Concomitant]
  17. SYNTHROID [Concomitant]
  18. FOSAMAX [Concomitant]
  19. CALCIUM (CALCIUM) [Concomitant]
  20. ASPIRIN [Concomitant]

REACTIONS (5)
  - CYANOSIS [None]
  - DYSPNOEA [None]
  - HYPOTENSION [None]
  - NAUSEA [None]
  - VOMITING [None]
